FAERS Safety Report 7792779-6 (Version None)
Quarter: 2011Q4

REPORT INFORMATION
  Report Type: 
  Country: None (occurrence: None)
  Receive Date: 20111003
  Receipt Date: 20110930
  Transmission Date: 20120403
  Serious: Yes (Hospitalization)
  Sender: FDA-Public Use
  Company Number: US-GLAXOSMITHKLINE-A0733508A

PATIENT
  Age: 44 Year
  Sex: Male
  Weight: 147.7 kg

DRUGS (8)
  1. AVAPRO [Concomitant]
  2. NIASPAN [Concomitant]
  3. ASPIRIN [Concomitant]
  4. ANTIHYPERTENSIVE [Concomitant]
  5. ZETIA [Concomitant]
  6. AVANDIA [Suspect]
     Indication: DIABETES MELLITUS
     Dosage: 4MG PER DAY
     Route: 048
  7. GEMFIBROZIL [Concomitant]
  8. WELLBUTRIN XL [Concomitant]
     Route: 048

REACTIONS (5)
  - CHEST PAIN [None]
  - LEFT VENTRICULAR HYPERTROPHY [None]
  - LEFT ATRIAL DILATATION [None]
  - PULMONARY HYPERTENSION [None]
  - MYOCARDIAL INFARCTION [None]
